FAERS Safety Report 7575459-1 (Version None)
Quarter: 2011Q2

REPORT INFORMATION
  Report Type: 
  Country: None (occurrence: None)
  Receive Date: 20110627
  Receipt Date: 20110619
  Transmission Date: 20111010
  Serious: Yes (Other)
  Sender: FDA-Public Use
  Company Number: DE-NAPPMUNDI-DEU-2011-0007486

PATIENT
  Sex: Female

DRUGS (11)
  1. LEVOTHYROXINE SODIUM [Concomitant]
     Dosage: 100 MG/ML, SEE TEXT
  2. DOLOMIT [Concomitant]
     Dosage: 1 TSP, TID
  3. KATADOLON S [Concomitant]
     Dosage: 1 TABLET, NOCTE
     Route: 048
  4. MIRTAZAPINE [Concomitant]
     Indication: ANXIETY DISORDER
     Dosage: 30 MG, NOCTE
  5. TILIDIN COMP [Concomitant]
     Dosage: UNK, BID
  6. ATACAND [Concomitant]
     Dosage: 16 MG, SEE TEXT
  7. OXYCODONE HCL [Suspect]
     Indication: PAIN
     Dosage: UNK, SEE TEXT
     Route: 048
  8. LORAZEPAM [Concomitant]
     Indication: ANXIETY DISORDER
     Dosage: 1 MG, SEE TEXT
  9. NEUPRO [Suspect]
     Indication: RESTLESS LEGS SYNDROME
     Dosage: 2 MG, SEE TEXT
     Route: 062
  10. NOVAMINSULFON [Concomitant]
     Dosage: 30 DROP, TID
     Route: 048
  11. MIRTAZAPINE [Concomitant]
     Dosage: 15 MG, NOCTE

REACTIONS (4)
  - BLOOD PRESSURE INCREASED [None]
  - NAUSEA [None]
  - SEROTONIN SYNDROME [None]
  - NIGHTMARE [None]
